FAERS Safety Report 21808310 (Version 2)
Quarter: 2023Q1

REPORT INFORMATION
  Report Type: Spontaneous
  Country: IT (occurrence: IT)
  Receive Date: 20230103
  Receipt Date: 20230202
  Transmission Date: 20230417
  Serious: Yes (Other)
  Sender: FDA-Public Use
  Company Number: IT-SUN PHARMACEUTICAL INDUSTRIES LTD-2022RR-371018

PATIENT
  Age: 41 Year
  Sex: Male

DRUGS (7)
  1. OXALIPLATIN [Suspect]
     Active Substance: OXALIPLATIN
     Indication: Rectal cancer
     Dosage: UNK
     Route: 065
     Dates: start: 201503, end: 201505
  2. LEVOLEUCOVORIN CALCIUM [Suspect]
     Active Substance: LEVOLEUCOVORIN CALCIUM
     Indication: Rectal cancer
     Dosage: FIRST LINE THERAPY
     Route: 065
     Dates: start: 201503, end: 201505
  3. LEVOLEUCOVORIN CALCIUM [Suspect]
     Active Substance: LEVOLEUCOVORIN CALCIUM
     Dosage: 8 CYCLES
     Route: 065
     Dates: start: 201508, end: 201511
  4. LEVOLEUCOVORIN CALCIUM [Suspect]
     Active Substance: LEVOLEUCOVORIN CALCIUM
     Dosage: SECOND LINE THERAPY
     Route: 065
     Dates: start: 201702
  5. FLUOROURACIL [Suspect]
     Active Substance: FLUOROURACIL
     Indication: Rectal cancer
     Dosage: UNK
     Route: 065
  6. PANITUMUMAB [Suspect]
     Active Substance: PANITUMUMAB
     Indication: Rectal cancer
     Dosage: UNK
     Route: 065
  7. OXALIPLATIN [Suspect]
     Active Substance: OXALIPLATIN
     Indication: Rectal cancer
     Dosage: UNK
     Route: 065
     Dates: start: 201508, end: 201511

REACTIONS (4)
  - Disease progression [Unknown]
  - Therapeutic product effect incomplete [Unknown]
  - Disease recurrence [Unknown]
  - Thrombocytopenia [Unknown]
